FAERS Safety Report 14243291 (Version 1)
Quarter: 2017Q4

REPORT INFORMATION
  Report Type: Spontaneous
  Country: US (occurrence: US)
  Receive Date: 20171201
  Receipt Date: 20171201
  Transmission Date: 20180321
  Serious: Yes (Other)
  Sender: FDA-Public Use
  Company Number: US-MYLANLABS-2017M1075286

PATIENT
  Age: 19 Month
  Sex: Male

DRUGS (5)
  1. LORAZEPAM. [Suspect]
     Active Substance: LORAZEPAM
     Indication: INSOMNIA
     Dosage: 0.05MG/KG PER DOSE FOR TWO DOSES
     Route: 048
  2. DIPHENHYDRAMINE. [Suspect]
     Active Substance: DIPHENHYDRAMINE
     Indication: INSOMNIA
     Dosage: 0.1MG/KG PER DOSE FOR THREE DOSES
     Route: 048
  3. PARACETAMOL [Concomitant]
     Active Substance: ACETAMINOPHEN
     Indication: INSOMNIA
     Route: 065
  4. MELATONIN [Concomitant]
     Active Substance: MELATONIN
     Indication: INSOMNIA
     Dosage: 0.25 MG/KG/DOSE FOR 14 DAYS
     Route: 048
  5. AMITRIPTYLINE [Concomitant]
     Active Substance: AMITRIPTYLINE
     Indication: INSOMNIA
     Dosage: 0.25 MG/KG/DOSE FOR 20 DAYS
     Route: 048

REACTIONS (1)
  - Paradoxical drug reaction [Unknown]
